FAERS Safety Report 12136756 (Version 1)
Quarter: 2016Q1

REPORT INFORMATION
  Report Type: Spontaneous
  Country: US (occurrence: None)
  Receive Date: 20160301
  Receipt Date: 20160301
  Transmission Date: 20160526
  Serious: Yes (Hospitalization)
  Sender: FDA-Public Use
  Company Number: None

PATIENT
  Age: 61 Year
  Sex: Female
  Weight: 68 kg

DRUGS (1)
  1. OXCARBAZEPINE. [Suspect]
     Active Substance: OXCARBAZEPINE
     Indication: TRIGEMINAL NEURALGIA
     Route: 048
     Dates: start: 20151021, end: 20151103

REACTIONS (5)
  - Nausea [None]
  - Hyponatraemia [None]
  - Condition aggravated [None]
  - Trigeminal neuralgia [None]
  - Decreased appetite [None]

NARRATIVE: CASE EVENT DATE: 20151104
